FAERS Safety Report 5255557-8 (Version None)
Quarter: 2007Q1

REPORT INFORMATION
  Report Type: 
  Country: None (occurrence: None)
  Receive Date: 20070228
  Receipt Date: 20070215
  Transmission Date: 20070707
  Serious: Yes (Hospitalization)
  Sender: FDA-Public Use
  Company Number: 100#03#2007-00547

PATIENT
  Age: 73 Year
  Sex: Female

DRUGS (3)
  1. CITALOPRAM HYDROBROMIDE [Suspect]
     Indication: DEPRESSION
     Dosage: 20 MG ORAL
     Route: 048
     Dates: start: 20070106, end: 20070107
  2. CALCICHEW D3 (LEKOVIT CA) (CALCIUM CARBONATE, CHOLECALCIFEROL, VITAMIN [Concomitant]
  3. FERROUS SULPHATE (FERROUS SULFATE) (FERROUS SULPHATE) [Concomitant]

REACTIONS (1)
  - ANGLE CLOSURE GLAUCOMA [None]
